FAERS Safety Report 7508832-8 (Version None)
Quarter: 2011Q2

REPORT INFORMATION
  Report Type: 
  Country: None (occurrence: None)
  Receive Date: 20110527
  Receipt Date: 20110512
  Transmission Date: 20111010
  Serious: Yes (Hospitalization, Other)
  Sender: FDA-Public Use
  Company Number: PHHY2010US21362

PATIENT
  Sex: Female

DRUGS (1)
  1. FEMARA [Suspect]
     Dosage: 2.5 MG, QD
     Route: 048
     Dates: start: 20090901

REACTIONS (8)
  - BRONCHITIS [None]
  - GASTRIC DISORDER [None]
  - SPINAL OSTEOARTHRITIS [None]
  - TOOTH DISORDER [None]
  - HYPERTENSION [None]
  - TOOTH FRACTURE [None]
  - PAIN [None]
  - IRRITABLE BOWEL SYNDROME [None]
